FAERS Safety Report 5531425-9 (Version None)
Quarter: 2007Q4

REPORT INFORMATION
  Report Type: 
  Country: None (occurrence: None)
  Receive Date: 20071203
  Receipt Date: 20071121
  Transmission Date: 20080405
  Serious: Yes (Hospitalization, Other)
  Sender: FDA-Public Use
  Company Number: GB-JNJFOC-20071109030

PATIENT
  Sex: Male
  Weight: 70 kg

DRUGS (16)
  1. INFLIXIMAB [Suspect]
     Indication: RHEUMATOID ARTHRITIS
     Route: 042
  2. LEFLUNOMIDE [Concomitant]
  3. PREDNISOLONE [Concomitant]
  4. AMITRIPTYLENE [Concomitant]
  5. BECLOMETHASONE DIPROPIONATE [Concomitant]
  6. BENDROFLUAZIDE [Concomitant]
  7. CLOPIDOGREL [Concomitant]
  8. CODEINE SUL TAB [Concomitant]
  9. DICLOFENAC [Concomitant]
  10. FERROUS SULFATE TAB [Concomitant]
  11. IBUPROFEN [Concomitant]
  12. LISINOPRIL [Concomitant]
  13. OMEPRAZOLE [Concomitant]
  14. PARACETAMOL [Concomitant]
  15. ALBUTEROL [Concomitant]
  16. SIMVASTATIN [Concomitant]

REACTIONS (2)
  - BASAL CELL CARCINOMA [None]
  - LOWER RESPIRATORY TRACT INFECTION [None]
